FAERS Safety Report 20935233 (Version 1)
Quarter: 2022Q2

REPORT INFORMATION
  Report Type: Spontaneous
  Country: US (occurrence: US)
  Receive Date: 20220608
  Receipt Date: 20220608
  Transmission Date: 20220720
  Serious: No
  Sender: FDA-Public Use
  Company Number: US-JNJFOC-20220610240

PATIENT
  Sex: Male

DRUGS (2)
  1. IBUPROFEN [Suspect]
     Active Substance: IBUPROFEN
     Indication: Pain in extremity
     Dosage: 800MG TWICE DAILY FOR 6-8 WEEKS
     Route: 065
     Dates: start: 202111
  2. COVID-19 VACCINE [Concomitant]
     Indication: Prophylaxis
     Dosage: UNKNOWN DOSE. INJECTED IN LEFT ARM.
     Route: 065
     Dates: start: 20211105

REACTIONS (1)
  - Product use in unapproved indication [Unknown]

NARRATIVE: CASE EVENT DATE: 20211101
